FAERS Safety Report 9755428 (Version 1)
Quarter: 2013Q4

REPORT INFORMATION
  Report Type: Spontaneous
  Country: NZ (occurrence: NZ)
  Receive Date: 20131213
  Receipt Date: 20131213
  Transmission Date: 20140711
  Serious: Yes (Other)
  Sender: FDA-Public Use
  Company Number: NZ-BAYER-2013-147493

PATIENT
  Age: 37 Year
  Sex: Female
  Weight: 83 kg

DRUGS (1)
  1. MIRENA [Suspect]
     Indication: CONTRACEPTION
     Dosage: 20 MCG/24HR, CONT
     Route: 015
     Dates: start: 199904

REACTIONS (8)
  - Genital haemorrhage [Recovered/Resolved]
  - Uterine perforation [Not Recovered/Not Resolved]
  - Caesarean section [Recovered/Resolved]
  - Sarcoma [Recovered/Resolved]
  - Pregnancy with contraceptive device [Recovered/Resolved]
  - Procedural pain [None]
  - Drug ineffective [None]
  - Device misuse [None]
